FAERS Safety Report 17674439 (Version 1)
Quarter: 2020Q2

REPORT INFORMATION
  Report Type: Spontaneous
  Country: IE (occurrence: IE)
  Receive Date: 20200416
  Receipt Date: 20200416
  Transmission Date: 20200714
  Serious: Yes (Other)
  Sender: FDA-Public Use
  Company Number: IE-TEVA-2020-IE-1223645

PATIENT
  Age: 59 Year
  Sex: Female

DRUGS (13)
  1. ATORVASTATIN (GENERIC) [Concomitant]
     Active Substance: ATORVASTATIN
     Indication: ACUTE MYOCARDIAL INFARCTION
     Dosage: 20 MG
     Route: 048
     Dates: start: 20171205
  2. ATORVASTATIN (GENERIC) [Concomitant]
     Active Substance: ATORVASTATIN
     Indication: BLOOD CHOLESTEROL
  3. ASPIRIN (GENERIC) [Concomitant]
     Active Substance: ASPIRIN
     Indication: PERCUTANEOUS CORONARY INTERVENTION
  4. ASPIRIN (GENERIC) [Concomitant]
     Active Substance: ASPIRIN
     Indication: STENT PLACEMENT
  5. MOVICOL 13.8G SACHET, POWDER FOR ORAL SOLUTION [Concomitant]
     Dates: start: 20190617
  6. RAMIPRIL (G) [Concomitant]
     Active Substance: RAMIPRIL
     Dosage: 1.25 MG
     Route: 048
     Dates: start: 20151113
  7. BISOPROLOL (GENERIC) [Concomitant]
     Indication: PERCUTANEOUS CORONARY INTERVENTION
  8. ASPIRIN (GENERIC) [Concomitant]
     Active Substance: ASPIRIN
     Indication: ACUTE MYOCARDIAL INFARCTION
     Dosage: 75 MG
     Route: 048
     Dates: start: 20150128
  9. AMLODIPINE (GENERIC) [Suspect]
     Active Substance: AMLODIPINE BESYLATE
     Indication: HYPERTENSION
     Dosage: 5 MILLIGRAM DAILY;
     Route: 048
     Dates: start: 20190621, end: 20200120
  10. ATORVASTATIN (GENERIC) [Concomitant]
     Active Substance: ATORVASTATIN
     Indication: PERCUTANEOUS CORONARY INTERVENTION
  11. BISOPROLOL (GENERIC) [Concomitant]
     Indication: STENT PLACEMENT
     Dosage: 1.25 MG
     Route: 048
     Dates: start: 20151113
  12. BISOPROLOL (GENERIC) [Concomitant]
     Indication: ACUTE MYOCARDIAL INFARCTION
  13. ATORVASTATIN (GENERIC) [Concomitant]
     Active Substance: ATORVASTATIN
     Indication: STENT PLACEMENT

REACTIONS (2)
  - Alopecia [Not Recovered/Not Resolved]
  - Madarosis [Not Recovered/Not Resolved]
